FAERS Safety Report 20634274 (Version 2)
Quarter: 2022Q2

REPORT INFORMATION
  Report Type: Spontaneous
  Country: JP (occurrence: JP)
  Receive Date: 20220325
  Receipt Date: 20220420
  Transmission Date: 20220721
  Serious: Yes (Hospitalization)
  Sender: FDA-Public Use
  Company Number: JP-NOVARTISPH-NVSJ2022JP004702

PATIENT
  Sex: Male

DRUGS (2)
  1. GLYCOPYRROLATE\INDACATEROL\MOMETASONE FUROATE [Suspect]
     Active Substance: GLYCOPYRROLATE\INDACATEROL\MOMETASONE FUROATE
     Indication: Asthma
     Dosage: 1DF:INDACATEROL ACETATE150UG,GLYCOPYRRONIUM BROMIDE50UG,MOMETASONE FUROATE 80UG
     Route: 055
  2. GLYCOPYRROLATE\INDACATEROL\MOMETASONE FUROATE [Suspect]
     Active Substance: GLYCOPYRROLATE\INDACATEROL\MOMETASONE FUROATE
     Dosage: 1DF:INDACATEROL ACETATE150UG,GLYCOPYRRONIUM BROMIDE50UG,MOMETASONE FUROATE 80UG
     Route: 048

REACTIONS (2)
  - Chest pain [Unknown]
  - Incorrect route of product administration [Unknown]
